FAERS Safety Report 14807145 (Version 2)
Quarter: 2018Q2

REPORT INFORMATION
  Report Type: Spontaneous
  Country: AR (occurrence: AR)
  Receive Date: 20180425
  Receipt Date: 20180503
  Transmission Date: 20180711
  Serious: Yes (Hospitalization, Other)
  Sender: FDA-Public Use
  Company Number: AR-ALEXION PHARMACEUTICALS INC.-A201802752

PATIENT
  Age: 4 Year
  Sex: Male
  Weight: 13 kg

DRUGS (1)
  1. STRENSIQ [Suspect]
     Active Substance: ASFOTASE ALFA
     Indication: PRODUCT USED FOR UNKNOWN INDICATION
     Dosage: 18 MG, TIW
     Route: 058
     Dates: start: 20170529

REACTIONS (14)
  - Blood creatinine decreased [Unknown]
  - Inappropriate schedule of drug administration [Recovered/Resolved]
  - Blood calcium increased [Unknown]
  - Fall [Unknown]
  - Creatinine urine increased [Unknown]
  - Urine calcium increased [Unknown]
  - Aspartate aminotransferase increased [Unknown]
  - Femur fracture [Not Recovered/Not Resolved]
  - Drug ineffective [Unknown]
  - Haemoglobin decreased [Unknown]
  - Haematocrit decreased [Unknown]
  - Injury [Unknown]
  - Blood alkaline phosphatase increased [Unknown]
  - Blood phosphorus decreased [Unknown]

NARRATIVE: CASE EVENT DATE: 20170829
